FAERS Safety Report 17460347 (Version 3)
Quarter: 2020Q1

REPORT INFORMATION
  Report Type: Report from Study
  Country: IT (occurrence: IT)
  Receive Date: 20200225
  Receipt Date: 20200311
  Transmission Date: 20200409
  Serious: Yes (Death, Hospitalization)
  Sender: FDA-Public Use
  Company Number: IT-AMGEN-ITACT2020029202

PATIENT
  Age: 74 Year
  Sex: Female
  Weight: 45 kg

DRUGS (5)
  1. 5-FU [FLUOROURACIL] [Suspect]
     Active Substance: FLUOROURACIL
     Indication: COLORECTAL CANCER METASTATIC
     Dosage: 520 MILLIGRAM, Q2WK
     Route: 040
     Dates: start: 20191216, end: 20200210
  2. PANITUMUMAB [Suspect]
     Active Substance: PANITUMUMAB
     Indication: COLORECTAL CANCER METASTATIC
     Dosage: 378 MILLIGRAM, Q2WK
     Route: 042
     Dates: start: 20191216, end: 20200210
  3. IRINOTECAN [Suspect]
     Active Substance: IRINOTECAN
     Indication: COLORECTAL CANCER METASTATIC
     Dosage: 234 MILLIGRAM, Q2WK
     Route: 042
     Dates: start: 20191216, end: 20200210
  4. FOLINIC ACID [Suspect]
     Active Substance: LEUCOVORIN
     Indication: COLORECTAL CANCER METASTATIC
     Dosage: 260 MILLIGRAM, Q2WK
     Route: 042
     Dates: start: 20191216, end: 20200210
  5. 5-FU [FLUOROURACIL] [Suspect]
     Active Substance: FLUOROURACIL
     Dosage: 3120 MILLIGRAM, Q2WK
     Route: 042
     Dates: start: 20191216, end: 20200210

REACTIONS (4)
  - Diarrhoea [Fatal]
  - Neutropenia [Fatal]
  - Vomiting [Fatal]
  - Stomatitis [Fatal]

NARRATIVE: CASE EVENT DATE: 20200217
